FAERS Safety Report 6216771-8 (Version None)
Quarter: 2009Q2

REPORT INFORMATION
  Report Type: 
  Country: None (occurrence: None)
  Receive Date: 20090605
  Receipt Date: 20090525
  Transmission Date: 20091009
  Serious: Yes (Hospitalization)
  Sender: FDA-Public Use
  Company Number: DK-ELI_LILLY_AND_COMPANY-DK200905004970

PATIENT
  Sex: Female
  Weight: 110 kg

DRUGS (1)
  1. BYETTA [Suspect]
     Indication: DIABETES MELLITUS
     Dosage: UNK, UNKNOWN
     Route: 065
     Dates: start: 20090522, end: 20090523

REACTIONS (2)
  - BLOOD PRESSURE INCREASED [None]
  - CARDIAC FIBRILLATION [None]
